FAERS Safety Report 6790133-7 (Version None)
Quarter: 2010Q2

REPORT INFORMATION
  Report Type: 
  Country: None (occurrence: None)
  Receive Date: 20100624
  Receipt Date: 20100622
  Transmission Date: 20101027
  Serious: Yes (Other)
  Sender: FDA-Public Use
  Company Number: FR-B.I. PHARMACEUTICALS,INC./RIDGEFIELD-2010-DE-03396GD

PATIENT
  Sex: Male

DRUGS (6)
  1. NEVIRAPINE [Suspect]
     Indication: HIV INFECTION
     Dates: start: 20040101
  2. EFAVIRENZ [Suspect]
     Indication: HIV INFECTION
     Dosage: 600 MG
     Dates: start: 20010101, end: 20040101
  3. DIDANOSINE [Suspect]
     Indication: HIV INFECTION
     Dosage: 400 MG
     Dates: start: 20010101, end: 20060101
  4. LAMIVUDINE [Suspect]
     Indication: HIV INFECTION
     Dosage: 300 MG
     Dates: start: 19960101, end: 20010101
  5. LAMIVUDINE [Suspect]
     Dosage: 300 MG
     Dates: start: 20010101
  6. ABACAVIR [Suspect]
     Indication: HIV INFECTION
     Dosage: 600 MG
     Dates: start: 20060101

REACTIONS (1)
  - BREAST CANCER IN SITU [None]
